FAERS Safety Report 13411079 (Version 2)
Quarter: 2023Q1

REPORT INFORMATION
  Report Type: Spontaneous
  Country: US (occurrence: US)
  Receive Date: 20170406
  Receipt Date: 20230102
  Transmission Date: 20230417
  Serious: No
  Sender: FDA-Public Use
  Company Number: US-JNJFOC-20170306546

PATIENT
  Age: 14 Year
  Sex: Male

DRUGS (4)
  1. RISPERDAL [Suspect]
     Active Substance: RISPERIDONE
     Indication: Abnormal behaviour
     Route: 048
  2. RISPERDAL [Suspect]
     Active Substance: RISPERIDONE
     Indication: Attention deficit hyperactivity disorder
  3. INVEGA [Suspect]
     Active Substance: PALIPERIDONE
     Indication: Product used for unknown indication
     Route: 048
  4. RISPERIDONE [Suspect]
     Active Substance: RISPERIDONE
     Indication: Product used for unknown indication
     Route: 048

REACTIONS (1)
  - Gynaecomastia [Unknown]

NARRATIVE: CASE EVENT DATE: 20120301
